FAERS Safety Report 10046862 (Version 1)
Quarter: 2014Q1

REPORT INFORMATION
  Report Type: Spontaneous
  Country: US (occurrence: None)
  Receive Date: 20140328
  Receipt Date: 20140328
  Transmission Date: 20141002
  Serious: Yes (Hospitalization, Disabling, Other)
  Sender: FDA-Public Use
  Company Number: None

PATIENT
  Age: 44 Year
  Sex: Female
  Weight: 58.97 kg

DRUGS (1)
  1. LEVAQUIN [Suspect]
     Indication: SINUSITIS
     Dosage: 1  ONCE DAILY TAKEN BY MOUTH
     Route: 048
     Dates: start: 20131025, end: 20131027

REACTIONS (18)
  - Anxiety [None]
  - Fatigue [None]
  - Arthralgia [None]
  - Myalgia [None]
  - Psychological trauma [None]
  - Pain [None]
  - Anxiety [None]
  - Abasia [None]
  - Burning sensation [None]
  - Nerve injury [None]
  - Paraesthesia [None]
  - Nausea [None]
  - Suicidal ideation [None]
  - Fatigue [None]
  - Joint crepitation [None]
  - Toxicity to various agents [None]
  - Quality of life decreased [None]
  - Tendonitis [None]
